FAERS Safety Report 9241644 (Version 2)
Quarter: 2013Q2

REPORT INFORMATION
  Report Type: Report from Study
  Country: JP (occurrence: JP)
  Receive Date: 20130419
  Receipt Date: 20130619
  Transmission Date: 20140414
  Serious: Yes (Death)
  Sender: FDA-Public Use
  Company Number: JP-BRISTOL-MYERS SQUIBB COMPANY-16600439

PATIENT
  Age: 92 Year
  Sex: Female

DRUGS (6)
  1. SPRYCEL [Suspect]
     Indication: CHRONIC MYELOID LEUKAEMIA
     Dosage: 11AUG2011-07SEP2011:20MG 1/D?13OCT2011-09NOV2011:20MG 2/D.
     Route: 048
     Dates: start: 20110811
  2. BUFFERIN-A TABS [Concomitant]
     Indication: ANTICOAGULANT THERAPY
     Dosage: 81MG
     Route: 048
  3. AMLODIN [Concomitant]
     Dosage: TAB
     Route: 048
  4. KALIMATE [Concomitant]
     Dosage: POWDER
     Route: 048
  5. LASIX [Concomitant]
     Dosage: TAB
     Route: 048
  6. ALDACTONE-A [Concomitant]
     Dosage: TAB
     Route: 048

REACTIONS (2)
  - Malignant neoplasm progression [Fatal]
  - Renal failure [Fatal]
